FAERS Safety Report 16582932 (Version 1)
Quarter: 2019Q3

REPORT INFORMATION
  Report Type: Spontaneous
  Country: CA (occurrence: CA)
  Receive Date: 20190717
  Receipt Date: 20190717
  Transmission Date: 20191004
  Serious: Yes (Life-Threatening)
  Sender: FDA-Public Use
  Company Number: CA-TEVA-2019-CA-1077305

PATIENT
  Age: 38 Year
  Sex: Male

DRUGS (2)
  1. VENLAFAXINE HYDROCHLORIDE. [Suspect]
     Active Substance: VENLAFAXINE HYDROCHLORIDE
     Indication: PRODUCT USED FOR UNKNOWN INDICATION
     Dosage: 112.5 MILLIGRAM DAILY;
     Route: 048
  2. BENYLIN DM SYR (DEXTROMETHORPHAN HYDROBROMIDE) [Interacting]
     Active Substance: DEXTROMETHORPHAN HYDROBROMIDE
     Indication: PRODUCT USED FOR UNKNOWN INDICATION
     Dosage: 30 MILLIGRAM
     Route: 065

REACTIONS (5)
  - Serotonin syndrome [Unknown]
  - Disorientation [Unknown]
  - Feeling abnormal [Unknown]
  - Psychomotor hyperactivity [Unknown]
  - Drug interaction [Unknown]
